FAERS Safety Report 4422325-6 (Version None)
Quarter: 2004Q3

REPORT INFORMATION
  Report Type: 
  Country: None (occurrence: None)
  Receive Date: 20040810
  Receipt Date: 20040705
  Transmission Date: 20050211
  Serious: Yes (Other)
  Sender: FDA-Public Use
  Company Number: AU-GLAXOSMITHKLINE-B0338704A

PATIENT
  Age: 51 Year
  Sex: Female

DRUGS (3)
  1. ZYBAN [Suspect]
     Dosage: 1TAB PER DAY
     Route: 048
     Dates: start: 20040703
  2. ANTIDEPRESSANT [Concomitant]
  3. INHALERS [Concomitant]

REACTIONS (5)
  - ENTERITIS [None]
  - FEELING ABNORMAL [None]
  - NAUSEA [None]
  - NERVOUSNESS [None]
  - VOMITING [None]
